FAERS Safety Report 9297331 (Version 1)
Quarter: 2013Q2

REPORT INFORMATION
  Report Type: Spontaneous
  Country: IT (occurrence: IT)
  Receive Date: 20130520
  Receipt Date: 20130520
  Transmission Date: 20140414
  Serious: Yes (Other)
  Sender: FDA-Public Use
  Company Number: IT-RANBAXY-2013R1-68981

PATIENT
  Age: 70 Year
  Sex: Male

DRUGS (1)
  1. CARVEDILOL [Suspect]
     Indication: PRODUCT USED FOR UNKNOWN INDICATION
     Dosage: UNK
     Route: 065

REACTIONS (4)
  - Drug ineffective [Recovering/Resolving]
  - Middle insomnia [Recovering/Resolving]
  - Tremor [Recovering/Resolving]
  - Blood pressure fluctuation [Recovering/Resolving]
